FAERS Safety Report 4440562-1 (Version None)
Quarter: 2004Q3

REPORT INFORMATION
  Report Type: 
  Country: None (occurrence: None)
  Receive Date: 20040831
  Receipt Date: 20040611
  Transmission Date: 20050211
  Serious: Yes (Hospitalization)
  Sender: FDA-Public Use
  Company Number: US_0405103066

PATIENT
  Age: 39 Year
  Sex: Female
  Weight: 56 kg

DRUGS (6)
  1. PROZAC [Suspect]
     Dosage: 20 MG/ 1 DAY
     Dates: start: 20040224, end: 20040323
  2. SYMBYAX [Suspect]
     Indication: BIPOLAR DISORDER
     Dates: start: 20040323
  3. LITHIUM CARBONATE [Concomitant]
  4. FUROSEMIDE [Concomitant]
  5. KCL (POTASSIUM CHLORIDE) [Concomitant]
  6. MVI (MVI) [Concomitant]

REACTIONS (4)
  - ALCOHOL INTERACTION [None]
  - DRUG WITHDRAWAL SYNDROME [None]
  - INTENTIONAL SELF-INJURY [None]
  - SUICIDAL IDEATION [None]
